FAERS Safety Report 20080468 (Version 1)
Quarter: 2021Q4

REPORT INFORMATION
  Report Type: Spontaneous
  Country: US (occurrence: US)
  Receive Date: 20211117
  Receipt Date: 20211117
  Transmission Date: 20220304
  Serious: Yes (Other)
  Sender: FDA-Public Use
  Company Number: US-BAYER-2021A250865

PATIENT

DRUGS (1)
  1. ASPIRIN [Suspect]
     Active Substance: ASPIRIN
     Indication: COVID-19 treatment
     Dosage: UNK
     Route: 015

REACTIONS (2)
  - Foetal growth restriction [None]
  - Foetal exposure during pregnancy [None]
